FAERS Safety Report 20424693 (Version 1)
Quarter: 2022Q1

REPORT INFORMATION
  Report Type: Spontaneous
  Country: JP (occurrence: JP)
  Receive Date: 20220203
  Receipt Date: 20220203
  Transmission Date: 20220423
  Serious: No
  Sender: FDA-Public Use
  Company Number: JP-TAKEDA-2021TJP003170

PATIENT
  Age: 8 Decade
  Sex: Male

DRUGS (1)
  1. CABOMETYX [Suspect]
     Active Substance: CABOZANTINIB S-MALATE
     Indication: Hepatocellular carcinoma
     Dosage: 60 MG
     Route: 048
     Dates: start: 20210106, end: 20210215

REACTIONS (5)
  - Malaise [Unknown]
  - Taste disorder [Unknown]
  - Stomatitis [Unknown]
  - Palmar-plantar erythrodysaesthesia syndrome [Unknown]
  - Dermatitis acneiform [Unknown]

NARRATIVE: CASE EVENT DATE: 20210101
